FAERS Safety Report 4780996-9 (Version None)
Quarter: 2005Q3

REPORT INFORMATION
  Report Type: 
  Country: None (occurrence: None)
  Receive Date: 20050926
  Receipt Date: 20050914
  Transmission Date: 20060218
  Serious: Yes (Hospitalization, Other)
  Sender: FDA-Public Use
  Company Number: A-CH2005-09465

PATIENT
  Age: 27 Year
  Sex: Male

DRUGS (12)
  1. TRACLEER [Suspect]
     Indication: PULMONARY HYPERTENSION
     Dosage: SEE IMAGE
     Route: 048
     Dates: end: 20050401
  2. TRACLEER [Suspect]
     Indication: PULMONARY HYPERTENSION
     Dosage: SEE IMAGE
     Route: 048
     Dates: start: 20031021
  3. TRACLEER [Suspect]
     Indication: PULMONARY HYPERTENSION
     Dosage: SEE IMAGE
     Route: 048
     Dates: start: 20050601
  4. ROCEPHIN [Suspect]
     Indication: BRAIN ABSCESS
     Dates: start: 20050324, end: 20050406
  5. FLAGYL [Suspect]
     Dates: start: 20050324, end: 20050406
  6. THIOPHENICOL (THIAMPHENICOL) [Suspect]
     Dates: start: 20050414, end: 20050425
  7. HYDREA [Concomitant]
  8. HEPARIN [Concomitant]
  9. ZESTRIL [Concomitant]
  10. SPECIAFOLDINE (FOLIC ACID) [Concomitant]
  11. MOTILIUM ^JANSSEN^ (DOMEPERIDONE) [Concomitant]
  12. POTASSIUM CHLORIDE [Concomitant]

REACTIONS (14)
  - ACUTE RESPIRATORY FAILURE [None]
  - BRAIN ABSCESS [None]
  - BRAIN OEDEMA [None]
  - CEREBRAL HAEMORRHAGE [None]
  - COAGULOPATHY [None]
  - CONDITION AGGRAVATED [None]
  - FACTOR V DEFICIENCY [None]
  - GINGIVAL BLEEDING [None]
  - PROCEDURAL COMPLICATION [None]
  - PULMONARY EMBOLISM [None]
  - PYREXIA [None]
  - SIMPLE PARTIAL SEIZURES [None]
  - THROMBOCYTOPENIA [None]
  - TOOTH EXTRACTION [None]
